FAERS Safety Report 10168185 (Version 1)
Quarter: 2014Q2

REPORT INFORMATION
  Report Type: Spontaneous
  Country: US (occurrence: US)
  Receive Date: 20140512
  Receipt Date: 20140512
  Transmission Date: 20141212
  Serious: No
  Sender: FDA-Public Use
  Company Number: US-ASTRAZENECA-2013SE65440

PATIENT
  Age: 71 Year
  Sex: Female
  Weight: 57.2 kg

DRUGS (4)
  1. FASLODEX [Suspect]
     Indication: BREAST CANCER METASTATIC
     Dosage: MONTH
     Route: 030
     Dates: start: 201306
  2. OXYCODONE [Concomitant]
     Indication: PROCEDURAL PAIN
     Dates: start: 201306, end: 2013
  3. FENTANYL [Concomitant]
     Indication: PROCEDURAL PAIN
     Dates: start: 201306, end: 2013
  4. LIDODERM PATCH [Concomitant]
     Indication: PAIN PROPHYLAXIS
     Route: 061
     Dates: start: 201306

REACTIONS (5)
  - Gastrointestinal infection [Unknown]
  - Weight decreased [Unknown]
  - Injection site pain [Unknown]
  - Injection site nodule [Not Recovered/Not Resolved]
  - Intentional product misuse [Unknown]
